FAERS Safety Report 4438690-X (Version None)
Quarter: 2004Q3

REPORT INFORMATION
  Report Type: 
  Country: None (occurrence: None)
  Receive Date: 20040830
  Receipt Date: 20040830
  Transmission Date: 20050211
  Serious: No
  Sender: FDA-Public Use
  Company Number: None

PATIENT
  Age: 35 Year
  Sex: Female
  Weight: 60.782 kg

DRUGS (1)
  1. ORTHO CYCLEN-28 [Suspect]
     Indication: CONTRACEPTION
     Dosage: ONE PO QD
     Route: 048

REACTIONS (2)
  - MENORRHAGIA [None]
  - METRORRHAGIA [None]
